FAERS Safety Report 6308140-7 (Version None)
Quarter: 2009Q3

REPORT INFORMATION
  Report Type: 
  Country: None (occurrence: None)
  Receive Date: 20090807
  Receipt Date: 20090724
  Transmission Date: 20100115
  Serious: Yes (Hospitalization, Disabling)
  Sender: FDA-Public Use
  Company Number: 8049352

PATIENT
  Age: 15 Year
  Sex: Male
  Weight: 51.36 kg

DRUGS (10)
  1. KEPPRA [Suspect]
     Dates: start: 20060101, end: 20070701
  2. DEPAKOTE [Suspect]
     Indication: FEBRILE CONVULSION
     Dosage: 250 MG 2/D PO
     Route: 048
     Dates: start: 19930101, end: 20060101
  3. DEPAKOTE [Suspect]
     Indication: FEBRILE CONVULSION
     Dosage: 250 MG 2/D PO
     Route: 048
     Dates: start: 20070701, end: 20080101
  4. DEPAKOTE [Suspect]
     Indication: FEBRILE CONVULSION
     Dosage: 325 MG 2/D PO
     Route: 048
     Dates: start: 20080101, end: 20090401
  5. DEPAKOTE [Suspect]
     Indication: FEBRILE CONVULSION
     Dosage: 500 MG 2/D PO
     Route: 048
     Dates: start: 20090401
  6. LAMICTAL [Suspect]
     Dates: start: 20060101, end: 20070101
  7. TOPIRAMATE [Concomitant]
  8. CYANOCOBALAMIN-TANNIN COMPLEX [Concomitant]
  9. ERGOCALCIFEROL [Concomitant]
  10. OMEGA [Concomitant]

REACTIONS (8)
  - ATROPHY [None]
  - COGNITIVE DISORDER [None]
  - GAIT DISTURBANCE [None]
  - MEMORY IMPAIRMENT [None]
  - MYOCLONIC EPILEPSY [None]
  - POSTICTAL PARALYSIS [None]
  - SPEECH DISORDER [None]
  - WEIGHT DECREASED [None]
